FAERS Safety Report 5078019-X (Version None)
Quarter: 2006Q3

REPORT INFORMATION
  Report Type: 
  Country: None (occurrence: None)
  Receive Date: 20060720
  Receipt Date: 20060509
  Transmission Date: 20061208
  Serious: Yes (Hospitalization, Other)
  Sender: FDA-Public Use
  Company Number: 2005130946

PATIENT
  Age: 27 Year
  Sex: Female

DRUGS (3)
  1. CELEBREX [Suspect]
     Indication: BURSITIS
     Dosage: UNKNOWN (1 IN 1 D), UNKNOWN
     Dates: start: 20010815, end: 20010821
  2. CELEBREX [Suspect]
     Indication: MUSCULOSKELETAL PAIN
     Dosage: UNKNOWN (1 IN 1 D), UNKNOWN
     Dates: start: 20010815, end: 20010821
  3. PIROXICAM [Concomitant]

REACTIONS (1)
  - STEVENS-JOHNSON SYNDROME [None]
